FAERS Safety Report 5051393-6 (Version None)
Quarter: 2006Q3

REPORT INFORMATION
  Report Type: 
  Country: None (occurrence: None)
  Receive Date: 20060714
  Receipt Date: 20060706
  Transmission Date: 20061208
  Serious: Yes (Hospitalization)
  Sender: FDA-Public Use
  Company Number: 2006AP03109

PATIENT
  Age: 15920 Day
  Sex: Male
  Weight: 98 kg

DRUGS (8)
  1. PROPOFOL [Suspect]
     Indication: GENERAL ANAESTHESIA
     Route: 042
     Dates: start: 20060321
  2. MIDAZOLAM HYDROCHLORIDE [Suspect]
     Indication: GENERAL ANAESTHESIA
     Route: 042
  3. ALFENTANIL [Suspect]
     Indication: GENERAL ANAESTHESIA
     Route: 042
     Dates: start: 20060321
  4. MORPHINE [Suspect]
     Route: 042
     Dates: start: 20060321
  5. ZYRTEC [Suspect]
  6. CO-PHENYLCAINE [Concomitant]
     Dates: start: 20060321
  7. SEVOFLURANE [Concomitant]
     Indication: GENERAL ANAESTHESIA
     Route: 055
     Dates: start: 20060321
  8. LAMISIL [Concomitant]
     Route: 048

REACTIONS (3)
  - EYE ROLLING [None]
  - POST PROCEDURAL COMPLICATION [None]
  - SOMNOLENCE [None]
